FAERS Safety Report 6803804-0 (Version None)
Quarter: 2010Q2

REPORT INFORMATION
  Report Type: 
  Country: None (occurrence: None)
  Receive Date: 20100628
  Receipt Date: 20100617
  Transmission Date: 20101027
  Serious: Yes (Hospitalization)
  Sender: FDA-Public Use
  Company Number: JP-JNJCH-2010013955

PATIENT
  Age: 37 Year
  Sex: Male

DRUGS (1)
  1. RIUP %5 [Suspect]
     Indication: ALOPECIA
     Dosage: TEXT:1ML TWICE DAILY
     Route: 061
     Dates: start: 20100501, end: 20100602

REACTIONS (1)
  - SUDDEN HEARING LOSS [None]
